FAERS Safety Report 4621717-X (Version None)
Quarter: 2005Q1

REPORT INFORMATION
  Report Type: 
  Country: None (occurrence: None)
  Receive Date: 20050329
  Receipt Date: 20050314
  Transmission Date: 20050727
  Serious: Yes (Hospitalization)
  Sender: FDA-Public Use
  Company Number: DEWYE502214MAR05

PATIENT
  Sex: Female
  Weight: 62 kg

DRUGS (10)
  1. ENBREL [Suspect]
     Indication: RHEUMATOID ARTHRITIS
     Route: 058
  2. LANTAREL [Concomitant]
     Indication: RHEUMATOID ARTHRITIS
     Route: 048
  3. PREDNISONE [Concomitant]
     Indication: RHEUMATOID ARTHRITIS
     Route: 048
  4. ACETYLSALICYLIC ACID SRT [Concomitant]
  5. SANDOCAL [Concomitant]
  6. FOLIC ACID [Concomitant]
  7. ACTONEL (PROCTOR + GAMBLE) [Concomitant]
  8. NEXIUM [Concomitant]
  9. CAPTOPRIL [Concomitant]
     Indication: HYPERTENSION
     Route: 048
  10. LASIX [Concomitant]
     Indication: CARDIAC FAILURE
     Route: 048

REACTIONS (4)
  - DYSPNOEA [None]
  - LARYNGEAL OEDEMA [None]
  - LARYNGITIS [None]
  - PYREXIA [None]
